FAERS Safety Report 10053280 (Version 2)
Quarter: 2014Q2

REPORT INFORMATION
  Report Type: Report from Study
  Country: IT (occurrence: IT)
  Receive Date: 20140402
  Receipt Date: 20140402
  Transmission Date: 20141212
  Serious: Yes (Hospitalization)
  Sender: FDA-Public Use
  Company Number: PHHY2013IT126593

PATIENT
  Age: 5 Year
  Sex: Male
  Weight: 16.8 kg

DRUGS (7)
  1. METHOTREXATE [Suspect]
     Indication: OSTEOSARCOMA
     Dosage: 8.64 MG CYCLIC
     Route: 042
     Dates: start: 20130910
  2. METHOTREXATE [Suspect]
     Dosage: 8.64 MG CYCLIC
     Route: 042
     Dates: start: 20131002, end: 20131002
  3. MEPACT [Suspect]
     Indication: OSTEOSARCOMA
     Dosage: 1.4 MG, CYCLIC
     Route: 042
     Dates: start: 20130910, end: 20131001
  4. MEPACT [Suspect]
     Dosage: 1.4 MG, CYCLIC
     Route: 042
     Dates: start: 20131001, end: 20131015
  5. CISPLATIN [Concomitant]
     Dates: start: 20131011, end: 20131011
  6. DOXORUBICIN HYDROCHLORIDE [Concomitant]
     Dates: start: 20130910, end: 20130910
  7. PARACETAMOL [Concomitant]
     Dates: start: 20130910, end: 20130910

REACTIONS (4)
  - Migraine [Recovered/Resolved]
  - Pyrexia [Recovered/Resolved]
  - Aspartate aminotransferase increased [Recovered/Resolved]
  - Alanine aminotransferase increased [Recovered/Resolved]
